FAERS Safety Report 16321547 (Version 3)
Quarter: 2019Q2

REPORT INFORMATION
  Report Type: Report from Study
  Country: US (occurrence: US)
  Receive Date: 20190516
  Receipt Date: 20190603
  Transmission Date: 20190711
  Serious: No
  Sender: FDA-Public Use
  Company Number: US-ALEXION PHARMACEUTICALS INC.-A201907380

PATIENT
  Age: 74 Year
  Sex: Male

DRUGS (2)
  1. STRENSIQ [Suspect]
     Active Substance: ASFOTASE ALFA
     Dosage: UNK, TIW
     Route: 058
     Dates: end: 201905
  2. STRENSIQ [Suspect]
     Active Substance: ASFOTASE ALFA
     Indication: HYPOPHOSPHATASIA
     Dosage: UNK
     Route: 058

REACTIONS (6)
  - Pain in extremity [Unknown]
  - Asthenia [Unknown]
  - Fatigue [Unknown]
  - Musculoskeletal pain [Unknown]
  - Blood alkaline phosphatase increased [Unknown]
  - Pain [Unknown]

NARRATIVE: CASE EVENT DATE: 201905
